FAERS Safety Report 15745793 (Version 1)
Quarter: 2018Q4

REPORT INFORMATION
  Report Type: Report from Study
  Country: US (occurrence: US)
  Receive Date: 20181220
  Receipt Date: 20181220
  Transmission Date: 20190205
  Serious: Yes (Life-Threatening, Hospitalization)
  Sender: FDA-Public Use
  Company Number: US-MYLANLABS-2018M1092617

PATIENT
  Age: 59 Year
  Sex: Female

DRUGS (1)
  1. PROPAFENONE. [Suspect]
     Active Substance: PROPAFENONE
     Indication: PRODUCT USED FOR UNKNOWN INDICATION
     Dosage: 300 MILLIGRAM/PRESCRIBED DOSE WAS 150MG
     Route: 048

REACTIONS (4)
  - Extra dose administered [Recovering/Resolving]
  - Ventricular tachycardia [Recovered/Resolved]
  - Atrioventricular block first degree [Unknown]
  - Syncope [Unknown]
